FAERS Safety Report 8438202-X (Version None)
Quarter: 2012Q2

REPORT INFORMATION
  Report Type: 
  Country: None (occurrence: None)
  Receive Date: 20120614
  Receipt Date: 20120607
  Transmission Date: 20120825
  Serious: Yes (Hospitalization, Other)
  Sender: FDA-Public Use
  Company Number: US-MILLENNIUM PHARMACEUTICALS, INC.-2010-05859

PATIENT

DRUGS (8)
  1. VELCADE [Suspect]
     Indication: MULTIPLE MYELOMA
     Dosage: 1.3 MG/M2, CYCLIC
     Route: 042
  2. ELOTUZUMAB [Suspect]
     Dosage: 20 MG/KG, CYCLIC
  3. DIPHENHYDRAMINE HCL [Concomitant]
     Indication: PREMEDICATION
     Dosage: UNK
  4. ELOTUZUMAB [Suspect]
     Indication: MULTIPLE MYELOMA
     Dosage: 2.5 MG/KG, CYCLIC
     Route: 042
  5. ELOTUZUMAB [Suspect]
     Dosage: 5 MG/KG, CYCLIC
     Route: 042
  6. ELOTUZUMAB [Suspect]
     Dosage: 10 MG/KG, CYCLIC
     Route: 042
  7. METHYLPREDNISOLONE [Concomitant]
     Indication: PREMEDICATION
     Dosage: 50 MG, CYCLIC
     Route: 042
  8. ACETAMINOPHEN [Concomitant]
     Indication: PREMEDICATION
     Dosage: UNK
     Route: 048

REACTIONS (2)
  - GASTROENTERITIS [None]
  - CHEST PAIN [None]
